FAERS Safety Report 4556572-X (Version None)
Quarter: 2005Q1

REPORT INFORMATION
  Report Type: 
  Country: None (occurrence: None)
  Receive Date: 20050114
  Receipt Date: 20041230
  Transmission Date: 20050727
  Serious: Yes (Hospitalization)
  Sender: FDA-Public Use
  Company Number: 211620

PATIENT
  Age: 67 Year
  Sex: Male
  Weight: 58.9 kg

DRUGS (2)
  1. BEVACIZUMAB (BEVACIZUMAB ) PWDR + SOLVENT, INFUSION SOLN, 100 MG [Suspect]
     Indication: METASTATIC NEOPLASM
     Dosage: 15 MG/KG, Q3W, INTRAVENOUS
     Route: 042
     Dates: start: 20041011
  2. ERLOTINIB (ERLOTINIB) TABLET, 150MG [Suspect]
     Indication: METASTATIC NEOPLASM
     Dosage: 150 MG, QD, ORAL
     Route: 048
     Dates: start: 20041011

REACTIONS (7)
  - ABSCESS [None]
  - INCISION SITE ABSCESS [None]
  - POSTOPERATIVE INFECTION [None]
  - SKIN NECROSIS [None]
  - SUPERINFECTION [None]
  - SWELLING FACE [None]
  - TUMOUR NECROSIS [None]
